FAERS Safety Report 7508581-6 (Version None)
Quarter: 2011Q2

REPORT INFORMATION
  Report Type: 
  Country: None (occurrence: None)
  Receive Date: 20110527
  Receipt Date: 20100413
  Transmission Date: 20111010
  Serious: No
  Sender: FDA-Public Use
  Company Number: A0855330A

PATIENT
  Age: 50 Year
  Sex: Female
  Weight: 83.5 kg

DRUGS (5)
  1. NORCO [Suspect]
     Indication: PAIN
     Dosage: 9TAB PER DAY
     Route: 048
     Dates: end: 20100401
  2. FLOLAN [Concomitant]
     Route: 065
  3. VICODIN ES [Concomitant]
  4. HYDROCODONE BITARTRATE AND ACETAMINOPHEN [Concomitant]
     Route: 065
  5. FLOLAN [Suspect]
     Indication: PULMONARY HYPERTENSION
     Route: 042
     Dates: start: 20090901

REACTIONS (3)
  - FLUSHING [None]
  - PRURITUS GENERALISED [None]
  - RASH [None]
